FAERS Safety Report 12729767 (Version 2)
Quarter: 2017Q1

REPORT INFORMATION
  Report Type: Spontaneous
  Country: FR (occurrence: FR)
  Receive Date: 20160909
  Receipt Date: 20170215
  Transmission Date: 20170428
  Serious: Yes (Hospitalization)
  Sender: FDA-Public Use
  Company Number: FR-LABORATOIRE HRA PHARMA-1057225

PATIENT
  Age: 48 Year
  Sex: Male

DRUGS (2)
  1. METOPIRONE [Suspect]
     Active Substance: METYRAPONE
     Route: 048
     Dates: start: 20160727
  2. KETOCONAZOLE. [Suspect]
     Active Substance: KETOCONAZOLE

REACTIONS (1)
  - Thrombocytopenia [Recovered/Resolved]
